FAERS Safety Report 26113879 (Version 3)
Quarter: 2025Q4

REPORT INFORMATION
  Report Type: Spontaneous
  Country: US (occurrence: None)
  Receive Date: 20251202
  Receipt Date: 20251223
  Transmission Date: 20260118
  Serious: Yes (Hospitalization, Other)
  Sender: UCB
  Company Number: US-UCBSA-2025060726

PATIENT
  Age: 63 Year

DRUGS (3)
  1. BIMZELX [Suspect]
     Active Substance: BIMEKIZUMAB-BKZX
     Indication: Hidradenitis
     Dosage: 320 MILLIGRAM, EV 2 WEEKS(QOW) AT WEEK 0,2,4,6,8,10,12,14,16, THEN EVERY 4 WEEKS
  2. ELIQUIS [Suspect]
     Active Substance: APIXABAN
     Indication: Product used for unknown indication
     Dosage: UNK
  3. FLECAINIDE [Concomitant]
     Active Substance: FLECAINIDE
     Indication: Product used for unknown indication
     Dosage: UNK

REACTIONS (5)
  - Gastritis [Unknown]
  - Cerebral haematoma [Unknown]
  - Cerebral haemorrhage [Unknown]
  - Therapeutic procedure [Unknown]
  - Rash [Unknown]
